FAERS Safety Report 25599353 (Version 1)
Quarter: 2025Q3

REPORT INFORMATION
  Report Type: Spontaneous
  Country: CA (occurrence: CA)
  Receive Date: 20250724
  Receipt Date: 20250724
  Transmission Date: 20251020
  Serious: Yes (Hospitalization, Other)
  Sender: DR REDDYS
  Company Number: None

PATIENT
  Age: 72 Year
  Sex: Female

DRUGS (1)
  1. ZOLEDRONIC ACID [Suspect]
     Active Substance: ZOLEDRONIC ACID
     Indication: Product used for unknown indication

REACTIONS (8)
  - Infection [Unknown]
  - Dehydration [Unknown]
  - Diarrhoea [Unknown]
  - Dyspnoea [Unknown]
  - Pallor [Unknown]
  - Sepsis [Unknown]
  - Vomiting [Unknown]
  - Malaise [Unknown]
